FAERS Safety Report 6889720-7 (Version None)
Quarter: 2010Q3

REPORT INFORMATION
  Report Type: 
  Country: None (occurrence: None)
  Receive Date: 20100730
  Receipt Date: 20080507
  Transmission Date: 20110219
  Serious: No
  Sender: FDA-Public Use
  Company Number: US-PFIZER INC-2008013731

PATIENT
  Sex: Female
  Weight: 71.21 kg

DRUGS (12)
  1. LIPITOR [Suspect]
     Indication: BLOOD CHOLESTEROL INCREASED
     Route: 048
     Dates: start: 20071211
  2. LIPITOR [Suspect]
     Indication: HYPERLIPIDAEMIA
  3. PREVACID [Concomitant]
  4. LEXAPRO [Concomitant]
  5. SEROQUEL [Concomitant]
  6. NAPROXEN [Concomitant]
  7. CARISOPRODOL [Concomitant]
  8. AMOXICILLIN [Concomitant]
  9. ACTONEL [Concomitant]
  10. COMBIVENT [Concomitant]
     Indication: ASTHMA
  11. AMITRIPTYLINE HYDROCHLORIDE [Concomitant]
  12. SOMA [Concomitant]

REACTIONS (6)
  - BLOOD CHOLESTEROL INCREASED [None]
  - DIARRHOEA [None]
  - EXPIRED DRUG ADMINISTERED [None]
  - EYE PAIN [None]
  - HEADACHE [None]
  - WRONG TECHNIQUE IN DRUG USAGE PROCESS [None]
